FAERS Safety Report 8466769-4 (Version None)
Quarter: 2012Q2

REPORT INFORMATION
  Report Type: 
  Country: None (occurrence: None)
  Receive Date: 20120619
  Receipt Date: 20120615
  Transmission Date: 20120825
  Serious: Yes (Other)
  Sender: FDA-Public Use
  Company Number: ADR-2011-11369

PATIENT
  Sex: Male

DRUGS (2)
  1. LIORESAL [Suspect]
     Indication: MUSCLE SPASTICITY
     Dosage: 777 MCG, DAILY, INTRATHECAL
  2. LIORESAL [Suspect]
     Indication: MULTIPLE SCLEROSIS
     Dosage: 777 MCG, DAILY, INTRATHECAL

REACTIONS (8)
  - MUSCLE SPASTICITY [None]
  - DRUG INEFFECTIVE [None]
  - URINARY TRACT INFECTION [None]
  - MUSCULOSKELETAL STIFFNESS [None]
  - UNDERDOSE [None]
  - NEUROMYELITIS OPTICA [None]
  - PERFORMANCE STATUS DECREASED [None]
  - CONDITION AGGRAVATED [None]
